FAERS Safety Report 8299827-8 (Version None)
Quarter: 2012Q2

REPORT INFORMATION
  Report Type: 
  Country: None (occurrence: None)
  Receive Date: 20120419
  Receipt Date: 20120417
  Transmission Date: 20120825
  Serious: Yes (Death, Hospitalization)
  Sender: FDA-Public Use
  Company Number: TR-RB-038494-12

PATIENT
  Sex: Male
  Weight: 60 kg

DRUGS (4)
  1. SUBOXONE [Suspect]
     Indication: DRUG DEPENDENCE
     Dosage: 4-8 MG
     Route: 048
     Dates: start: 20120314, end: 20120317
  2. TRIMETHOBENZAMIDE HCL [Suspect]
     Indication: VOMITING
     Dosage: UNKNOWN DOSAGE DETAILS
     Route: 048
     Dates: start: 20120314, end: 20120317
  3. MIRTAZAPINE [Suspect]
     Indication: PRODUCT USED FOR UNKNOWN INDICATION
     Route: 048
     Dates: start: 20120314, end: 20120317
  4. LOMOTIL [Concomitant]
     Indication: PRODUCT USED FOR UNKNOWN INDICATION
     Dosage: 3 TABLETS DAILY
     Route: 065
     Dates: start: 20120314, end: 20120317

REACTIONS (7)
  - ALTERED STATE OF CONSCIOUSNESS [None]
  - DEATH [None]
  - DRUG WITHDRAWAL SYNDROME [None]
  - HYPOPNOEA [None]
  - FATIGUE [None]
  - PULSE ABNORMAL [None]
  - ASTHENIA [None]
